FAERS Safety Report 9178714 (Version 3)
Quarter: 2015Q4

REPORT INFORMATION
  Report Type: Report from Study
  Country: FR (occurrence: FR)
  Receive Date: 20130321
  Receipt Date: 20151129
  Transmission Date: 20160305
  Serious: Yes (Death, Other)
  Sender: FDA-Public Use
  Company Number: FR-ROCHE-1204715

PATIENT
  Sex: Female

DRUGS (1)
  1. BEVACIZUMAB [Suspect]
     Active Substance: BEVACIZUMAB
     Indication: OVARIAN CANCER
     Dosage: DOSE INTENSITY OF 2.5 MG/KG/WEEK (5 MG/KG EVERY TWO WEEKS OR 7.5 MG/KG EVERY THREE WEEKS)
     Route: 065

REACTIONS (6)
  - Hypertension [Unknown]
  - Gastritis [Unknown]
  - Ventricular dysfunction [Unknown]
  - Hypersensitivity [Unknown]
  - Pulmonary hypertension [Fatal]
  - Proteinuria [Unknown]
